FAERS Safety Report 13517273 (Version 1)
Quarter: 2017Q2

REPORT INFORMATION
  Report Type: Spontaneous
  Country: US (occurrence: US)
  Receive Date: 20170505
  Receipt Date: 20170505
  Transmission Date: 20170830
  Serious: Yes (Other)
  Sender: FDA-Public Use
  Company Number: US-RECKITT BENCKISER HEALTHCARE INT LIMITED-RB-85477-2017

PATIENT
  Age: 55 Year
  Sex: Female

DRUGS (1)
  1. MUCINEX FAST-MAX NIGHT TIME COLD AND FLU (ACETAMINOPHEN\DIPHENHYDR\PHENYLEP) [Suspect]
     Active Substance: ACETAMINOPHEN\DIPHENHYDRAMINE HYDROCHLORIDE\PHENYLEPHRINE HYDROCHLORIDE
     Indication: PRODUCT USED FOR UNKNOWN INDICATION
     Dosage: UNK, THREE DOSES
     Route: 065
     Dates: start: 20170427, end: 20170428

REACTIONS (1)
  - Epistaxis [Recovered/Resolved]

NARRATIVE: CASE EVENT DATE: 20170427
